FAERS Safety Report 18615026 (Version 2)
Quarter: 2020Q4

REPORT INFORMATION
  Report Type: Report from Study
  Country: None (occurrence: DE)
  Receive Date: 20201215
  Receipt Date: 20201224
  Transmission Date: 20210114
  Serious: Yes (Hospitalization)
  Sender: FDA-Public Use
  Company Number: DE-ABBVIE-20K-062-3691330-00

PATIENT
  Sex: Female
  Weight: 82 kg

DRUGS (3)
  1. HUMIRA [Suspect]
     Active Substance: ADALIMUMAB
     Route: 058
     Dates: start: 20191125, end: 202009
  2. HUMIRA [Suspect]
     Active Substance: ADALIMUMAB
     Indication: AXIAL SPONDYLOARTHRITIS
     Route: 058
     Dates: start: 20171002, end: 20191125
  3. IBUPROFEN. [Concomitant]
     Active Substance: IBUPROFEN
     Indication: FIBROMYALGIA
     Route: 048

REACTIONS (1)
  - Eye inflammation [Recovered/Resolved]

NARRATIVE: CASE EVENT DATE: 2020
